FAERS Safety Report 16444323 (Version 1)
Quarter: 2019Q2

REPORT INFORMATION
  Report Type: Other
  Country: US (occurrence: US)
  Receive Date: 20190618
  Receipt Date: 20190618
  Transmission Date: 20190711
  Serious: Yes (Hospitalization)
  Sender: FDA-Public Use
  Company Number: US-FDC LIMITED-2069299

PATIENT
  Age: 21 Year
  Sex: Female

DRUGS (7)
  1. DIPHENHYDRAMINE. [Concomitant]
     Active Substance: DIPHENHYDRAMINE
     Route: 061
  2. CIPROFLOXACIN. [Suspect]
     Active Substance: CIPROFLOXACIN
     Indication: URINARY TRACT INFECTION
     Route: 065
  3. ALLOPURINOL. [Suspect]
     Active Substance: ALLOPURINOL
     Route: 065
  4. AMOXICILLIN AND CLAVULANATE POTASSIUM [Concomitant]
     Active Substance: AMOXICILLIN\CLAVULANATE POTASSIUM
     Route: 065
  5. MICONAZOLE. [Concomitant]
     Active Substance: MICONAZOLE
     Route: 065
  6. TOBRAMYCIN. [Concomitant]
     Active Substance: TOBRAMYCIN
     Route: 047
  7. MELOXICAM. [Suspect]
     Active Substance: MELOXICAM
     Route: 065

REACTIONS (1)
  - Toxic epidermal necrolysis [Recovered/Resolved]
